FAERS Safety Report 7262125-5 (Version None)
Quarter: 2011Q1

REPORT INFORMATION
  Report Type: 
  Country: None (occurrence: None)
  Receive Date: 20110130
  Receipt Date: 20101202
  Transmission Date: 20110831
  Serious: No
  Sender: FDA-Public Use
  Company Number: US-ABBOTT-10P-163-0689235-00

PATIENT
  Age: 69 Year
  Sex: Female

DRUGS (4)
  1. PAXIL [Concomitant]
     Indication: DEPRESSION
  2. PREDNISONE [Concomitant]
     Indication: ARTHRITIS
  3. HUMIRA [Suspect]
     Indication: RHEUMATOID ARTHRITIS
     Dates: start: 20101202
  4. APRISO [Concomitant]
     Indication: COLITIS

REACTIONS (1)
  - INJECTION SITE PAIN [None]
